FAERS Safety Report 5620689-9 (Version None)
Quarter: 2008Q1

REPORT INFORMATION
  Report Type: 
  Country: None (occurrence: None)
  Receive Date: 20080208
  Receipt Date: 20080130
  Transmission Date: 20080703
  Serious: Yes (Hospitalization, Other)
  Sender: FDA-Public Use
  Company Number: GR-ABBOTT-07P-066-0430194-00

PATIENT
  Age: 79 Year
  Sex: Female
  Weight: 63.4 kg

DRUGS (9)
  1. ZEMPLAR [Suspect]
     Indication: HYPERPARATHYROIDISM SECONDARY
     Route: 042
     Dates: start: 20070223
  2. EPOETIN BETA [Concomitant]
     Indication: ANAEMIA
     Route: 042
     Dates: start: 20040101
  3. SACCHARATED IRON OXIDE [Concomitant]
     Indication: ANAEMIA
     Route: 042
     Dates: start: 20040101
  4. SUPERAMINE [Concomitant]
     Indication: CARNITINE ABNORMAL
     Route: 042
     Dates: start: 20040101
  5. SEVELAMER [Concomitant]
     Indication: HYPERPHOSPHATAEMIA
     Route: 048
  6. DILTIAZEM HYDROCHLORIDE [Concomitant]
     Indication: ATRIAL FIBRILLATION
     Dosage: 1/2 X 2
     Route: 048
     Dates: start: 20060101, end: 20071021
  7. NEUROBION [Concomitant]
     Indication: HYPOVITAMINOSIS
     Route: 042
  8. OMEPRAZOLE [Concomitant]
     Indication: PROPHYLAXIS AGAINST GASTROINTESTINAL ULCER
     Route: 048
     Dates: start: 20040101
  9. CLOPIDOGREL [Concomitant]
     Indication: ANTIPLATELET THERAPY
     Route: 048
     Dates: start: 20070701

REACTIONS (1)
  - ATRIAL FIBRILLATION [None]
